FAERS Safety Report 13306437 (Version 1)
Quarter: 2017Q1

REPORT INFORMATION
  Report Type: Spontaneous
  Country: US (occurrence: US)
  Receive Date: 20170308
  Receipt Date: 20170308
  Transmission Date: 20170428
  Serious: Yes (Hospitalization)
  Sender: FDA-Public Use
  Company Number: US-SUNOVION-2016SUN003351

PATIENT

DRUGS (1)
  1. LATUDA [Suspect]
     Active Substance: LURASIDONE HYDROCHLORIDE
     Dosage: UNK
     Route: 048
     Dates: start: 2015

REACTIONS (5)
  - Nerve injury [Not Recovered/Not Resolved]
  - Pain [Not Recovered/Not Resolved]
  - Aphasia [Recovering/Resolving]
  - Gait disturbance [Not Recovered/Not Resolved]
  - Mental disorder [Unknown]
